FAERS Safety Report 25533845 (Version 1)
Quarter: 2025Q3

REPORT INFORMATION
  Report Type: Spontaneous
  Country: CN (occurrence: CN)
  Receive Date: 20250709
  Receipt Date: 20250709
  Transmission Date: 20251020
  Serious: Yes (Hospitalization, Other)
  Sender: BAYER HEALTHCARE PHARMACEUTICALS INC.
  Company Number: CN-BAYER-2025A090137

PATIENT
  Age: 46 Year
  Sex: Male
  Weight: 51 kg

DRUGS (1)
  1. STIVARGA [Suspect]
     Active Substance: REGORAFENIB MONOHYDRATE
     Indication: Hepatic cancer
     Dosage: 4 DF, QD
     Route: 048
     Dates: start: 20250701, end: 20250702

REACTIONS (3)
  - Rash macular [Recovering/Resolving]
  - Hyponatraemia [None]
  - Hypochloraemia [None]

NARRATIVE: CASE EVENT DATE: 20250702
